FAERS Safety Report 13921666 (Version 1)
Quarter: 2017Q3

REPORT INFORMATION
  Report Type: Spontaneous
  Country: US (occurrence: None)
  Receive Date: 20170830
  Receipt Date: 20170830
  Transmission Date: 20171127
  Serious: Yes (Other)
  Sender: FDA-Public Use
  Company Number: None

PATIENT
  Age: 69 Year
  Sex: Male
  Weight: 83.92 kg

DRUGS (15)
  1. RANITIDINE. [Concomitant]
     Active Substance: RANITIDINE
  2. PICATO [Suspect]
     Active Substance: INGENOL MEBUTATE
     Indication: ACTINIC KERATOSIS
     Dosage: FREQUENCY - ONCE DAILY FOR 2 DAYS
     Route: 061
     Dates: start: 20161017, end: 20161018
  3. NADOLOL. [Concomitant]
     Active Substance: NADOLOL
  4. POTASSIUM CITRATE ER 15 MEQ, 15 MEQ [Concomitant]
     Active Substance: POTASSIUM CITRATE
  5. GLIMEPIRIDE. [Concomitant]
     Active Substance: GLIMEPIRIDE
  6. ASPIRIN 81 MG [Concomitant]
     Active Substance: ASPIRIN
  7. CLOPIDOGREL [Concomitant]
     Active Substance: CLOPIDOGREL BISULFATE
  8. MULTIVITAMIN [Concomitant]
     Active Substance: VITAMINS
  9. LANSOPRAZOLE. [Concomitant]
     Active Substance: LANSOPRAZOLE
  10. METFORMIN [Concomitant]
     Active Substance: METFORMIN HYDROCHLORIDE
  11. AMLODIPINE [Concomitant]
     Active Substance: AMLODIPINE BESYLATE
  12. GLUCOSAMINE [Concomitant]
     Active Substance: GLUCOSAMINE
  13. VITAMIN C [Concomitant]
     Active Substance: ASCORBIC ACID
  14. ALLOPURINOL. [Concomitant]
     Active Substance: ALLOPURINOL
  15. LOSARTAN. [Concomitant]
     Active Substance: LOSARTAN

REACTIONS (2)
  - Squamous cell carcinoma [None]
  - Drug ineffective [None]

NARRATIVE: CASE EVENT DATE: 20161017
